FAERS Safety Report 4663602-3 (Version None)
Quarter: 2005Q2

REPORT INFORMATION
  Report Type: 
  Country: None (occurrence: None)
  Receive Date: 20050517
  Receipt Date: 20050511
  Transmission Date: 20051028
  Serious: Yes (Other)
  Sender: FDA-Public Use
  Company Number: PHEH2005US05421

PATIENT
  Age: 7 Year
  Sex: Male

DRUGS (3)
  1. TRILEPTAL [Suspect]
     Indication: COMPLEX PARTIAL SEIZURES
     Dosage: 600 MG, QD
     Route: 048
     Dates: start: 20040801, end: 20050101
  2. TRILEPTAL [Suspect]
     Dosage: 675 MG, QD
     Route: 048
     Dates: start: 20050101, end: 20050501
  3. TRILEPTAL [Suspect]
     Dosage: 750 MG, QD
     Route: 048
     Dates: start: 20050501

REACTIONS (4)
  - FATIGUE [None]
  - HALLUCINATION, VISUAL [None]
  - HEADACHE [None]
  - SPEECH DISORDER [None]
